FAERS Safety Report 5931208-1 (Version None)
Quarter: 2008Q4

REPORT INFORMATION
  Report Type: 
  Country: None (occurrence: None)
  Receive Date: 20081027
  Receipt Date: 20081021
  Transmission Date: 20090506
  Serious: Yes (Death, Other)
  Sender: FDA-Public Use
  Company Number: PHEH2007US12177

PATIENT
  Sex: Male
  Weight: 113.38 kg

DRUGS (1)
  1. ZOMETA [Suspect]
     Indication: MULTIPLE MYELOMA
     Dosage: UNK, UNK

REACTIONS (26)
  - ANHEDONIA [None]
  - ANXIETY [None]
  - AORTIC ARTERIOSCLEROSIS [None]
  - APPENDIX DISORDER [None]
  - ASPIRATION [None]
  - CARDIOMEGALY [None]
  - CORONARY ARTERY DISEASE [None]
  - DEFORMITY [None]
  - DISCOMFORT [None]
  - EMOTIONAL DISTRESS [None]
  - EMPHYSEMA [None]
  - GALLBLADDER DISORDER [None]
  - GAMMOPATHY [None]
  - GASTROINTESTINAL DISORDER [None]
  - HYPOPHAGIA [None]
  - INJURY [None]
  - INTERVERTEBRAL DISC PROTRUSION [None]
  - LIFE EXPECTANCY SHORTENED [None]
  - MYOCARDIAL INFARCTION [None]
  - OSTEONECROSIS [None]
  - PAIN [None]
  - PAPILLOMA [None]
  - PNEUMOCONIOSIS [None]
  - PULMONARY HAEMORRHAGE [None]
  - TUMOUR INVASION [None]
  - VENTRICULAR HYPERTROPHY [None]
